FAERS Safety Report 26170871 (Version 2)
Quarter: 2025Q4

REPORT INFORMATION
  Report Type: Spontaneous
  Country: EU (occurrence: EU)
  Receive Date: 20251217
  Receipt Date: 20251231
  Transmission Date: 20260117
  Serious: Yes (Other)
  Sender: BRISTOL-MYERS SQUIBB COMPANY
  Company Number: EU-EVENT-004143

PATIENT
  Age: 57 Year
  Sex: Male

DRUGS (8)
  1. LENALIDOMIDE [Suspect]
     Active Substance: LENALIDOMIDE
     Indication: Diffuse large B-cell lymphoma
     Dosage: 10 MILLIGRAM, QD (HALF OF THE FIRST CYCLE)
     Dates: start: 202407, end: 202503
  2. LENALIDOMIDE [Suspect]
     Active Substance: LENALIDOMIDE
     Dosage: 5 MILLIGRAM, QD (HALF OF THE FIRST CYCLE)
     Dates: start: 202407, end: 202503
  3. LENALIDOMIDE [Suspect]
     Active Substance: LENALIDOMIDE
     Dosage: 15 MILLIGRAM, QD (HALF OF THE SECOND CYCLE)
     Dates: start: 202407, end: 202503
  4. LENALIDOMIDE [Suspect]
     Active Substance: LENALIDOMIDE
     Dosage: 10 MILLIGRAM, QD (HALF OF THE SECOND CYCLE)
     Dates: start: 202407, end: 202503
  5. TAFASITAMAB [Suspect]
     Active Substance: TAFASITAMAB
     Indication: Diffuse large B-cell lymphoma
     Dosage: UNK
     Dates: start: 202407, end: 202503
  6. TAFASITAMAB [Suspect]
     Active Substance: TAFASITAMAB
     Indication: Primary cardiac lymphoma
     Dosage: 12 MILLIGRAM/KILOGRAM EVERY WEEK (C1, C2, C3) THEN EVERY 2 WEEKS
  7. TAFASITAMAB [Suspect]
     Active Substance: TAFASITAMAB
     Dosage: 12 MILLIGRAM/KILOGRAM EVERY WEEK (C1, C2, C3) THEN EVERY 2 WEEKS
     Route: 042
  8. GLOFITAMAB [Concomitant]
     Active Substance: GLOFITAMAB
     Indication: Primary cardiac lymphoma
     Dosage: UNK

REACTIONS (1)
  - Atrial fibrillation [Recovered/Resolved]

NARRATIVE: CASE EVENT DATE: 20240806
